FAERS Safety Report 22661053 (Version 1)
Quarter: 2023Q2

REPORT INFORMATION
  Report Type: Report from Study
  Country: FR (occurrence: FR)
  Receive Date: 20230630
  Receipt Date: 20230630
  Transmission Date: 20230721
  Serious: Yes (Hospitalization)
  Sender: FDA-Public Use
  Company Number: FR-TAKEDA-2023TUS063979

PATIENT
  Age: 5 Year
  Sex: Male

DRUGS (5)
  1. IDURSULFASE [Suspect]
     Active Substance: IDURSULFASE
     Indication: Mucopolysaccharidosis II
     Dosage: UNK UNK, 1/WEEK
     Route: 042
     Dates: start: 20190626
  2. RISPERDAL [Concomitant]
     Active Substance: RISPERIDONE
     Indication: Agitation
     Dosage: UNK
     Route: 048
     Dates: start: 20190730, end: 20220623
  3. Solupred [Concomitant]
     Indication: Subdural haematoma
     Dosage: UNK
     Route: 048
     Dates: start: 20211129, end: 20220103
  4. VALPROATE SODIUM [Concomitant]
     Active Substance: VALPROATE SODIUM
     Indication: Epilepsy
     Dosage: UNK
     Route: 048
     Dates: start: 20220609, end: 20220623
  5. VALPROATE SODIUM [Concomitant]
     Active Substance: VALPROATE SODIUM
     Indication: Anticonvulsant drug level
     Dosage: UNK
     Route: 048
     Dates: start: 20220623

REACTIONS (1)
  - Poor venous access [Recovered/Resolved]

NARRATIVE: CASE EVENT DATE: 20190709
